FAERS Safety Report 9732099 (Version 1)
Quarter: 2013Q4

REPORT INFORMATION
  Report Type: Spontaneous
  Country: US (occurrence: None)
  Receive Date: 20131204
  Receipt Date: 20131204
  Transmission Date: 20140711
  Serious: Yes (Death)
  Sender: FDA-Public Use
  Company Number: None

PATIENT
  Age: 68 Year
  Sex: Male
  Weight: 89 kg

DRUGS (1)
  1. CLOPIDOGREL [Suspect]
     Dosage: 1 PILL QD ORAL
     Route: 048

REACTIONS (5)
  - Fall [None]
  - Head injury [None]
  - Subdural haemorrhage [None]
  - Convulsion [None]
  - Post procedural complication [None]
